FAERS Safety Report 8798935 (Version 2)
Quarter: 2013Q1

REPORT INFORMATION
  Report Type: Spontaneous
  Country: JP (occurrence: JP)
  Receive Date: 20120920
  Receipt Date: 20130129
  Transmission Date: 20140127
  Serious: Yes (Death)
  Sender: FDA-Public Use
  Company Number: JP-SANOFI-AVENTIS-2012SA068327

PATIENT
  Age: 84 Year
  Sex: Female
  Weight: 50 kg

DRUGS (17)
  1. CLEXANE [Suspect]
     Indication: JOINT ARTHROPLASTY
     Route: 058
     Dates: start: 20120801, end: 20120806
  2. BLOPRESS [Concomitant]
     Route: 048
     Dates: end: 20120807
  3. PLAVIX [Concomitant]
     Route: 048
  4. PARULEON [Concomitant]
  5. NABOAL - SLOW RELEASE [Concomitant]
     Dosage: DOSE: 37.5
     Dates: end: 20120807
  6. SULPIRIDE [Concomitant]
  7. TEPRENONE [Concomitant]
  8. EPEL [Concomitant]
     Dates: end: 20120807
  9. SEDIEL [Concomitant]
  10. MENITAZINE [Concomitant]
  11. ADETPHOS [Concomitant]
  12. FLUVOXAMINE [Concomitant]
     Route: 048
     Dates: end: 20120807
  13. ITOPRIDE HYDROCHLORIDE [Concomitant]
  14. AMITRIPTYLINE HYDROCHLORIDE [Concomitant]
     Route: 048
     Dates: end: 20120807
  15. CARBIDOPA/LEVODOPA [Concomitant]
     Route: 048
     Dates: end: 20120807
  16. BROTIZOLAM [Concomitant]
  17. ATORVASTATIN [Concomitant]

REACTIONS (5)
  - Brain herniation [Fatal]
  - Cerebral haemorrhage [Fatal]
  - Chills [Fatal]
  - Depressed level of consciousness [Fatal]
  - Hemiplegia [Fatal]
